FAERS Safety Report 8468508 (Version 2)
Quarter: 2012Q4

REPORT INFORMATION
  Report Type: 
  Country: US (occurrence: US)
  Receive Date: 20120320
  Receipt Date: 20121203
  Transmission Date: 20130627
  Serious: Yes (Hospitalization, Other)
  Sender: FDA-Public Use
  Company Number: US-ELI_LILLY_AND_COMPANY-US201203002916

PATIENT
  Age: 56 Year
  Sex: Female

DRUGS (1)
  1. FORTEO [Suspect]
     Indication: OSTEOPOROSIS
     Dosage: 20 ug, qd

REACTIONS (8)
  - Knee arthroplasty [Unknown]
  - Back disorder [Unknown]
  - Musculoskeletal discomfort [Unknown]
  - Nerve compression [Not Recovered/Not Resolved]
  - Arthralgia [Unknown]
  - Fall [Recovered/Resolved]
  - Ligament injury [Not Recovered/Not Resolved]
  - Muscle spasms [Not Recovered/Not Resolved]
